FAERS Safety Report 17750824 (Version 1)
Quarter: 2020Q2

REPORT INFORMATION
  Report Type: Spontaneous
  Country: US (occurrence: US)
  Receive Date: 20200505
  Receipt Date: 20200505
  Transmission Date: 20200714
  Serious: Yes (Other)
  Sender: FDA-Public Use
  Company Number: None

PATIENT
  Sex: Male

DRUGS (1)
  1. TRIMIX (ALPROSTADIL\PAPAVERINE\PHENTOLAMINE) [Suspect]
     Active Substance: ALPROSTADIL\PAPAVERINE\PHENTOLAMINE
     Indication: ERECTILE DYSFUNCTION
     Dosage: ?          QUANTITY:1 INJECTION(S);OTHER ROUTE:INTRACAVERNOUS?
     Dates: start: 20200405

REACTIONS (2)
  - Blindness [None]
  - Vision blurred [None]

NARRATIVE: CASE EVENT DATE: 20200428
